FAERS Safety Report 8323451 (Version 9)
Quarter: 2013Q2

REPORT INFORMATION
  Report Type: Spontaneous
  Country: US (occurrence: US)
  Receive Date: 20120105
  Receipt Date: 20130411
  Transmission Date: 20140414
  Serious: Yes (Death, Other)
  Sender: FDA-Public Use
  Company Number: US-BAYER-2012-001170

PATIENT
  Age: 56 Year
  Sex: Female

DRUGS (17)
  1. MAGNEVIST [Suspect]
     Indication: NUCLEAR MAGNETIC RESONANCE IMAGING ABDOMINAL
     Dosage: UNK
     Route: 042
     Dates: start: 20040521, end: 20040521
  2. MAGNEVIST [Suspect]
     Indication: RENAL MASS
  3. OPTIMARK [Suspect]
     Indication: NUCLEAR MAGNETIC RESONANCE IMAGING BRAIN
     Dosage: 15 ML, ONCE
     Route: 042
     Dates: start: 20060602, end: 20060602
  4. OPTIMARK [Suspect]
     Indication: MUSCULAR WEAKNESS
  5. OPTIMARK [Suspect]
     Indication: DISORIENTATION
  6. OPTIMARK [Suspect]
     Indication: HEADACHE
  7. GADOLINIUM IN UNSPECIFIED DRUG [Suspect]
     Indication: NUCLEAR MAGNETIC RESONANCE IMAGING
     Dosage: UNK
     Dates: start: 19990528, end: 19990528
  8. LANTUS [Concomitant]
     Indication: DIABETES MELLITUS
     Dosage: 20 U, QD
     Dates: start: 200504
  9. SENSIPAR [Concomitant]
     Indication: DIALYSIS
     Dosage: 90 MG, QD
  10. RENVELA [Concomitant]
     Indication: DIALYSIS
     Dosage: QID WITH MEALS
  11. PROGRAF [Concomitant]
  12. PREDNISONE [Concomitant]
  13. ATENOLOL [Concomitant]
  14. SLOW RELEASE IRON [Concomitant]
     Dosage: 250 MG, BID
     Route: 048
  15. PROCRIT [Concomitant]
     Dosage: 1 U, TIW
  16. PHOSLO [Concomitant]
     Dosage: 667 MG, UNK
     Route: 048
  17. NEPHROVITE [VIT C,VIT H,B5,B12,B9,B3,B6,B2,B1 HCL] [Concomitant]
     Dosage: 1 DF, QD
     Route: 048

REACTIONS (33)
  - Nephrogenic systemic fibrosis [None]
  - Scar [None]
  - Skin fibrosis [None]
  - Mobility decreased [None]
  - Abasia [None]
  - Oedema peripheral [None]
  - Arthralgia [None]
  - Muscular weakness [None]
  - Musculoskeletal stiffness [None]
  - Dry skin [None]
  - Musculoskeletal stiffness [None]
  - Ephelides [None]
  - Pigmentation disorder [None]
  - Skin tightness [None]
  - Joint contracture [None]
  - Skin disorder [None]
  - Rash [None]
  - Oedema peripheral [None]
  - Pruritus [None]
  - Musculoskeletal pain [None]
  - Muscle contracture [None]
  - Extremity contracture [None]
  - Pain in extremity [None]
  - Joint stiffness [None]
  - Skin induration [None]
  - Dermatitis exfoliative [None]
  - Pain [None]
  - Anxiety [None]
  - Injury [None]
  - Emotional distress [None]
  - General physical health deterioration [None]
  - Depression [None]
  - Anhedonia [None]
